FAERS Safety Report 7245619-8 (Version None)
Quarter: 2011Q1

REPORT INFORMATION
  Report Type: 
  Country: None (occurrence: None)
  Receive Date: 20110126
  Receipt Date: 20110124
  Transmission Date: 20110831
  Serious: Yes (Other)
  Sender: FDA-Public Use
  Company Number: GXKR2011DE00683

PATIENT
  Age: 72 Year
  Sex: Female

DRUGS (1)
  1. AMIOHEXAL [Suspect]
     Indication: ARRHYTHMIA
     Dosage: 200 MG, QD
     Route: 048
     Dates: start: 20050101

REACTIONS (5)
  - COUGH [None]
  - AORTIC DISSECTION [None]
  - PHOTOSENSITIVITY REACTION [None]
  - STENT PLACEMENT [None]
  - LUNG DISORDER [None]
